FAERS Safety Report 4375243-6 (Version None)
Quarter: 2004Q2

REPORT INFORMATION
  Report Type: 
  Country: None (occurrence: None)
  Receive Date: 20040607
  Receipt Date: 20040526
  Transmission Date: 20050107
  Serious: Yes (Death)
  Sender: FDA-Public Use
  Company Number: USA-2004-0015352

PATIENT
  Age: 56 Year
  Sex: Male
  Weight: 74.8 kg

DRUGS (5)
  1. OXYCODONE HYDROCHLORIDE CR [Suspect]
  2. DOXEPIN HCL [Suspect]
  3. PROPOXYPHENE HCL [Suspect]
  4. TRICYCLIC ANTIDEPRESSANTS [Suspect]
  5. ACETAMINOPHEN [Suspect]

REACTIONS (9)
  - ACCIDENTAL OVERDOSE [None]
  - ARTERIOSCLEROSIS [None]
  - CARDIOMYOPATHY [None]
  - CHEST PAIN [None]
  - CONTUSION [None]
  - ENDOCARDIAL FIBROSIS [None]
  - MULTIPLE DRUG OVERDOSE [None]
  - MYOCARDIAL FIBROSIS [None]
  - RENAL ADENOMA [None]
